FAERS Safety Report 4349130-3 (Version None)
Quarter: 2004Q2

REPORT INFORMATION
  Report Type: 
  Country: None (occurrence: None)
  Receive Date: 20040427
  Receipt Date: 20040427
  Transmission Date: 20050107
  Serious: Yes (Other)
  Sender: FDA-Public Use
  Company Number: None

PATIENT
  Sex: Female
  Weight: 74.8435 kg

DRUGS (3)
  1. WELLBUTRIN XL [Suspect]
     Indication: ANTIDEPRESSANT THERAPY
     Dosage: 300 MCG DAILY ORAL
     Route: 048
     Dates: start: 20040315, end: 20040410
  2. WELLBUTRIN XL [Suspect]
     Indication: EX-SMOKER
     Dosage: 300 MCG DAILY ORAL
     Route: 048
     Dates: start: 20040315, end: 20040410
  3. LEVOTHYROXINE [Concomitant]

REACTIONS (6)
  - AMNESIA [None]
  - DRUG INEFFECTIVE [None]
  - ERYTHEMA [None]
  - PRURITUS [None]
  - SELF-MEDICATION [None]
  - URTICARIA [None]
